FAERS Safety Report 9864816 (Version 1)
Quarter: 2014Q1

REPORT INFORMATION
  Report Type: Spontaneous
  Country: US (occurrence: US)
  Receive Date: 20140203
  Receipt Date: 20140203
  Transmission Date: 20141002
  Serious: No
  Sender: FDA-Public Use
  Company Number: US-AMGEN-USASP2014002958

PATIENT
  Age: 44 Year
  Sex: Male

DRUGS (1)
  1. ENBREL [Suspect]
     Indication: PALINDROMIC RHEUMATISM
     Dosage: UNK, QWK
     Route: 065
     Dates: start: 20130312

REACTIONS (1)
  - Injection site reaction [Not Recovered/Not Resolved]
